FAERS Safety Report 21957938 (Version 2)
Quarter: 2023Q1

REPORT INFORMATION
  Report Type: Spontaneous
  Country: CN (occurrence: CN)
  Receive Date: 20230206
  Receipt Date: 20230215
  Transmission Date: 20230418
  Serious: Yes (Hospitalization)
  Sender: FDA-Public Use
  Company Number: CN-002147023-NVSC2023CN022479

PATIENT
  Age: 34 Year
  Sex: Male
  Weight: 83 kg

DRUGS (2)
  1. SACUBITRIL\VALSARTAN [Suspect]
     Active Substance: SACUBITRIL\VALSARTAN
     Indication: Hypertension
     Dosage: 200 MG, QD
     Route: 048
     Dates: start: 20230108, end: 20230127
  2. HYDROCHLOROTHIAZIDE [Concomitant]
     Active Substance: HYDROCHLOROTHIAZIDE
     Indication: Hypertension
     Dosage: 25 MG, QD
     Route: 048
     Dates: start: 20230127, end: 20230127

REACTIONS (11)
  - Urticaria [Recovering/Resolving]
  - Chest discomfort [Unknown]
  - Palpitations [Unknown]
  - Dyspnoea [Unknown]
  - Skin plaque [Unknown]
  - Skin exfoliation [Unknown]
  - Dizziness [Unknown]
  - Nausea [Unknown]
  - Asthenia [Unknown]
  - Pruritus [Unknown]
  - Rash [Recovered/Resolved]

NARRATIVE: CASE EVENT DATE: 20230127
